FAERS Safety Report 9044931 (Version 2)
Quarter: 2013Q1

REPORT INFORMATION
  Report Type: Spontaneous
  Country: JP (occurrence: JP)
  Receive Date: 20130130
  Receipt Date: 20130206
  Transmission Date: 20140127
  Serious: Yes (Other)
  Sender: FDA-Public Use
  Company Number: JP-GLAXOSMITHKLINE-B0862727A

PATIENT
  Age: 61 Year
  Sex: Female

DRUGS (4)
  1. LAMICTAL [Suspect]
     Indication: BIPOLAR DISORDER
     Dosage: 25MG PER DAY
     Route: 048
     Dates: start: 20130111, end: 20130115
  2. DEPAKENE [Concomitant]
     Dosage: 200MG TWICE PER DAY
     Route: 048
  3. SEROQUEL [Concomitant]
     Route: 048
  4. UNKNOWN DRUG [Concomitant]
     Route: 065

REACTIONS (5)
  - Stevens-Johnson syndrome [Not Recovered/Not Resolved]
  - Drug eruption [Not Recovered/Not Resolved]
  - Rash generalised [Unknown]
  - Anorectal disorder [Unknown]
  - Chapped lips [Unknown]
